FAERS Safety Report 10405291 (Version 1)
Quarter: 2014Q3

REPORT INFORMATION
  Report Type: Spontaneous
  Country: US (occurrence: None)
  Receive Date: 20140821
  Receipt Date: 20140821
  Transmission Date: 20150326
  Serious: Yes (Other)
  Sender: FDA-Public Use
  Company Number: None

PATIENT
  Age: 44 Year
  Sex: Female
  Weight: 106.6 kg

DRUGS (2)
  1. NATURE-THROID [Suspect]
     Active Substance: THYROID, PORCINE
  2. THYROGLOBULIN [Suspect]
     Active Substance: THYROGLOBULIN
     Indication: HYPOTHYROIDISM
     Dosage: 1 TAB
     Dates: start: 20130612, end: 20130705

REACTIONS (5)
  - Chills [None]
  - Malaise [None]
  - Hyperhidrosis [None]
  - Nausea [None]
  - Abdominal distension [None]

NARRATIVE: CASE EVENT DATE: 20030618
